FAERS Safety Report 21109574 (Version 1)
Quarter: 2022Q3

REPORT INFORMATION
  Report Type: Spontaneous
  Country: US (occurrence: US)
  Receive Date: 20220721
  Receipt Date: 20220721
  Transmission Date: 20221027
  Serious: No
  Sender: FDA-Public Use
  Company Number: US-LUPIN PHARMACEUTICALS INC.-2022-09606

PATIENT

DRUGS (11)
  1. RIFABUTIN [Suspect]
     Active Substance: RIFABUTIN
     Indication: Staphylococcal infection
     Dosage: UNK
     Route: 065
  2. RIFABUTIN [Suspect]
     Active Substance: RIFABUTIN
     Indication: Device related infection
  3. RIFABUTIN [Suspect]
     Active Substance: RIFABUTIN
     Indication: Soft tissue infection
  4. RIFABUTIN [Suspect]
     Active Substance: RIFABUTIN
     Indication: Skin infection
  5. CEFAZOLIN [Concomitant]
     Active Substance: CEFAZOLIN
     Indication: Staphylococcal infection
     Dosage: UNK
     Route: 065
  6. CEFAZOLIN [Concomitant]
     Active Substance: CEFAZOLIN
     Indication: Device related infection
  7. CEFAZOLIN [Concomitant]
     Active Substance: CEFAZOLIN
     Indication: Skin infection
  8. CEFAZOLIN [Concomitant]
     Active Substance: CEFAZOLIN
     Indication: Soft tissue infection
  9. BUPROPION [Concomitant]
     Active Substance: BUPROPION
     Indication: Product used for unknown indication
     Dosage: UNK
     Route: 065
  10. CARIPRAZINE [Concomitant]
     Active Substance: CARIPRAZINE
     Indication: Product used for unknown indication
     Dosage: UNK
     Route: 065
  11. VORTIOXETINE [Concomitant]
     Active Substance: VORTIOXETINE
     Indication: Product used for unknown indication
     Dosage: UNK
     Route: 065

REACTIONS (1)
  - Nausea [Recovered/Resolved]
